FAERS Safety Report 7323390-9 (Version None)
Quarter: 2011Q1

REPORT INFORMATION
  Report Type: 
  Country: None (occurrence: None)
  Receive Date: 20110301
  Receipt Date: 20110218
  Transmission Date: 20110831
  Serious: Yes (Other)
  Sender: FDA-Public Use
  Company Number: US-JNJFOC-20110207745

PATIENT
  Age: 60 Year
  Sex: Female

DRUGS (3)
  1. VISINE-A [Suspect]
     Indication: ERYTHEMA
     Dosage: ONCE DROP PER EYE ONCE IN THE MORNING
     Route: 047
  2. LIPITOR [Concomitant]
     Indication: BLOOD CHOLESTEROL INCREASED
     Route: 065
  3. VISINE-A [Suspect]
     Indication: MULTIPLE ALLERGIES
     Dosage: ONCE DROP PER EYE ONCE IN THE MORNING
     Route: 047

REACTIONS (3)
  - MYDRIASIS [None]
  - OCULAR HYPERAEMIA [None]
  - DRY EYE [None]
